FAERS Safety Report 23531326 (Version 1)
Quarter: 2024Q1

REPORT INFORMATION
  Report Type: Spontaneous
  Country: US (occurrence: US)
  Receive Date: 20240216
  Receipt Date: 20240216
  Transmission Date: 20240410
  Serious: No
  Sender: FDA-Public Use
  Company Number: US-PHARMAAND GMBH-2023PHR00233

PATIENT
  Sex: Male
  Weight: 121.1 kg

DRUGS (1)
  1. RUBRACA [Suspect]
     Active Substance: RUCAPARIB CAMSYLATE
     Indication: Prostate cancer
     Dosage: 2 TABS (500MG) EVERY 12 HOURS
     Dates: start: 20230203, end: 20231008

REACTIONS (1)
  - Prostatic specific antigen increased [Unknown]
